FAERS Safety Report 11765443 (Version 1)
Quarter: 2015Q4

REPORT INFORMATION
  Report Type: Spontaneous
  Country: US (occurrence: US)
  Receive Date: 20151120
  Receipt Date: 20151120
  Transmission Date: 20160304
  Serious: No
  Sender: FDA-Public Use
  Company Number: US-ELI_LILLY_AND_COMPANY-US201404004299

PATIENT
  Age: 74 Year
  Sex: Female

DRUGS (15)
  1. GABAPENTIN. [Concomitant]
     Active Substance: GABAPENTIN
  2. ADCIRCA [Concomitant]
     Active Substance: TADALAFIL
  3. ATENOLOL. [Concomitant]
     Active Substance: ATENOLOL
  4. DEXLANSOPRAZOLE [Concomitant]
     Active Substance: DEXLANSOPRAZOLE
  5. SOMA [Concomitant]
     Active Substance: CARISOPRODOL
  6. SIMVASTATIN. [Concomitant]
     Active Substance: SIMVASTATIN
  7. CELEBREX [Concomitant]
     Active Substance: CELECOXIB
  8. SYMBICORT [Concomitant]
     Active Substance: BUDESONIDE\FORMOTEROL FUMARATE DIHYDRATE
  9. SPIRIVA [Concomitant]
     Active Substance: TIOTROPIUM BROMIDE MONOHYDRATE
  10. PLAVIX [Concomitant]
     Active Substance: CLOPIDOGREL BISULFATE
  11. HYDROCODONE [Concomitant]
     Active Substance: HYDROCODONE
  12. GLIPIZIDE ER [Concomitant]
     Active Substance: GLIPIZIDE
  13. FORTEO [Suspect]
     Active Substance: TERIPARATIDE
     Indication: OSTEOPOROSIS
     Dosage: UNK, QD
     Route: 065
     Dates: start: 20140403
  14. HYDROMORPHONE [Concomitant]
     Active Substance: HYDROMORPHONE
  15. LOSARTAN POTASSIUM. [Concomitant]
     Active Substance: LOSARTAN POTASSIUM

REACTIONS (2)
  - Pain in extremity [Unknown]
  - Pain [Recovering/Resolving]

NARRATIVE: CASE EVENT DATE: 20140403
